FAERS Safety Report 8401237-7 (Version None)
Quarter: 2012Q2

REPORT INFORMATION
  Report Type: 
  Country: None (occurrence: None)
  Receive Date: 20120601
  Receipt Date: 20120528
  Transmission Date: 20120825
  Serious: Yes (Other)
  Sender: FDA-Public Use
  Company Number: PHHY2012JP046312

PATIENT

DRUGS (1)
  1. NEORAL [Suspect]
     Indication: DERMATITIS EXFOLIATIVE
     Route: 048

REACTIONS (3)
  - DERMATITIS EXFOLIATIVE [None]
  - CONDITION AGGRAVATED [None]
  - ILEUS [None]
